FAERS Safety Report 4525100-7 (Version None)
Quarter: 2004Q4

REPORT INFORMATION
  Report Type: 
  Country: None (occurrence: None)
  Receive Date: 20041117
  Receipt Date: 20031204
  Transmission Date: 20050328
  Serious: Yes (Other)
  Sender: FDA-Public Use
  Company Number: C2003-3186.01

PATIENT
  Age: 42 Year
  Sex: Male

DRUGS (6)
  1. CLOZAPINE [Suspect]
     Indication: SCHIZOAFFECTIVE DISORDER
     Dosage: 600MG, QD, ORAL
     Route: 048
     Dates: start: 20031104, end: 20031202
  2. PROPRANOLOL HYDROCHLORIDE [Concomitant]
  3. BENZTROPINE MESYLATE [Concomitant]
  4. OXCARBAZEPINE [Concomitant]
  5. LEVOTHYROXINE SODIUM [Concomitant]
  6. HALOPERIDOL DECONATE INJECTION [Concomitant]

REACTIONS (2)
  - LEUKOPENIA [None]
  - NEUTROPENIA [None]
